FAERS Safety Report 10770250 (Version 2)
Quarter: 2015Q1

REPORT INFORMATION
  Report Type: Spontaneous
  Country: US (occurrence: US)
  Receive Date: 20150206
  Receipt Date: 20150330
  Transmission Date: 20150721
  Serious: Yes (Other)
  Sender: FDA-Public Use
  Company Number: US-BAYER-2015-017751

PATIENT
  Age: 45 Year
  Sex: Female
  Weight: 127.89 kg

DRUGS (2)
  1. METFORMIN [Concomitant]
     Active Substance: METFORMIN HYDROCHLORIDE
  2. MIRENA [Suspect]
     Active Substance: LEVONORGESTREL
     Indication: MENORRHAGIA
     Dosage: 20 MCG/24HR, CONT
     Route: 015
     Dates: start: 20141015, end: 20150202

REACTIONS (2)
  - Genital haemorrhage [None]
  - Device expulsion [None]

NARRATIVE: CASE EVENT DATE: 20150203
